FAERS Safety Report 17605274 (Version 1)
Quarter: 2020Q1

REPORT INFORMATION
  Report Type: Spontaneous
  Country: IT (occurrence: IT)
  Receive Date: 20200331
  Receipt Date: 20200331
  Transmission Date: 20200409
  Serious: Yes (Disabling)
  Sender: FDA-Public Use
  Company Number: None

PATIENT
  Age: 26 Year
  Sex: Female
  Weight: 50 kg

DRUGS (1)
  1. NUVARING [Suspect]
     Active Substance: ETHINYL ESTRADIOL\ETONOGESTREL
     Dosage: ?          QUANTITY:1 VAGINAL RING;OTHER FREQUENCY:1 EVERY 21 DAYS;?
     Route: 067
     Dates: start: 20170130, end: 20200330

REACTIONS (5)
  - Device breakage [None]
  - Vaginal infection [None]
  - Vulvovaginal inflammation [None]
  - Vulvovaginal discomfort [None]
  - Complication associated with device [None]

NARRATIVE: CASE EVENT DATE: 20200330
